FAERS Safety Report 10257083 (Version 1)
Quarter: 2014Q2

REPORT INFORMATION
  Report Type: Spontaneous
  Country: GB (occurrence: GB)
  Receive Date: 20140625
  Receipt Date: 20140625
  Transmission Date: 20141212
  Serious: Yes (Other)
  Sender: FDA-Public Use
  Company Number: GB-ACCORD-024361

PATIENT
  Age: 14 Year
  Sex: Female

DRUGS (4)
  1. LEVETIRACETAM [Suspect]
     Indication: EPILEPSY
     Dosage: RECEIVED 600 MG TWICE A DAY FROM 30-JAN-2014 AND 6ML OF SOLUTION OF LEVETIRACETAM ON AN UNKNOWN DATE
     Route: 048
  2. RISPERIDONE [Concomitant]
     Indication: PRODUCT USED FOR UNKNOWN INDICATION
     Route: 065
  3. ERGOCALCIFEROL [Concomitant]
     Indication: PRODUCT USED FOR UNKNOWN INDICATION
     Route: 065
  4. CLONAZEPAM [Concomitant]
     Indication: PRODUCT USED FOR UNKNOWN INDICATION
     Route: 065

REACTIONS (8)
  - Joint crepitation [Unknown]
  - Self injurious behaviour [Unknown]
  - Aggression [Unknown]
  - Anxiety [Unknown]
  - Abnormal behaviour [Unknown]
  - Screaming [Unknown]
  - Convulsion [Unknown]
  - Underdose [Unknown]
